FAERS Safety Report 13679270 (Version 2)
Quarter: 2017Q3

REPORT INFORMATION
  Report Type: Spontaneous
  Country: US (occurrence: US)
  Receive Date: 20170622
  Receipt Date: 20170710
  Transmission Date: 20171127
  Serious: Yes (Hospitalization, Other)
  Sender: FDA-Public Use
  Company Number: US-PFIZER INC-2017272829

PATIENT
  Age: 93 Year
  Sex: Male
  Weight: 70 kg

DRUGS (9)
  1. BROMELAIN [Suspect]
     Active Substance: BROMELAINS
     Indication: SUPPLEMENTATION THERAPY
     Dosage: 500 MG 300 GDU
     Route: 048
     Dates: end: 201701
  2. LASIX [Suspect]
     Active Substance: FUROSEMIDE
     Indication: CARDIAC DISORDER
     Dosage: UNK
     Route: 065
     Dates: end: 201701
  3. IBUPROFEN. [Suspect]
     Active Substance: IBUPROFEN
     Dosage: 2 DF, DAILY
     Route: 065
     Dates: end: 201701
  4. OMEGA 3 /01334101/ [Suspect]
     Active Substance: OMEGA-3 FATTY ACIDS
     Indication: SUPPLEMENTATION THERAPY
     Dosage: 1000 MG, UNK
     Route: 048
     Dates: end: 201701
  5. DHEA [Suspect]
     Active Substance: PRASTERONE
     Indication: SUPPLEMENTATION THERAPY
     Dosage: 50 MG, UNK
     Route: 048
     Dates: end: 201701
  6. COUMADINE [Suspect]
     Active Substance: WARFARIN SODIUM
     Indication: CARDIAC DISORDER
     Dosage: UNK
     Route: 065
  7. ATENOLOL. [Suspect]
     Active Substance: ATENOLOL
     Indication: CARDIAC DISORDER
     Dosage: UNK
     Route: 065
     Dates: end: 201701
  8. GARLIC /01570501/ [Suspect]
     Active Substance: GARLIC
     Indication: SUPPLEMENTATION THERAPY
     Dosage: 1000 MG, UNK
     Route: 048
     Dates: end: 201701
  9. NIACINAMIDE [Suspect]
     Active Substance: NIACINAMIDE
     Indication: SUPPLEMENTATION THERAPY
     Dosage: 500 MG, UNK
     Route: 048
     Dates: end: 201701

REACTIONS (3)
  - Renal failure [Unknown]
  - Diabetes mellitus [Unknown]
  - Cardiac failure congestive [Unknown]

NARRATIVE: CASE EVENT DATE: 201610
